FAERS Safety Report 6296027-8 (Version None)
Quarter: 2009Q3

REPORT INFORMATION
  Report Type: 
  Country: None (occurrence: None)
  Receive Date: 20090804
  Receipt Date: 20090729
  Transmission Date: 20100115
  Serious: Yes (Death)
  Sender: FDA-Public Use
  Company Number: FR-BRISTOL-MYERS SQUIBB COMPANY-14721492

PATIENT
  Age: 81 Year
  Sex: Male

DRUGS (8)
  1. SOTALOL HCL [Suspect]
     Route: 048
  2. SINEMET [Suspect]
     Dosage: SINEMET 100MG/10MG
     Route: 048
  3. KASKADIL [Suspect]
     Dosage: 4 VIALS RECEIVED
     Route: 042
     Dates: start: 20090316
  4. VITAMIN K1 [Suspect]
     Dosage: 1 DF=10MG/1ML
     Route: 042
     Dates: start: 20090316
  5. STABLON [Suspect]
     Dosage: STABLON 12.5MG
     Route: 048
  6. STALEVO 100 [Suspect]
     Dosage: 1DF=100 MG/25MG/200MG
     Route: 048
  7. LERCANIDIPINE [Suspect]
     Dosage: LERCAN 10MG
     Route: 048
  8. LASILIX FAIBLE [Suspect]
     Dosage: LASILIX FAIBLE 20MG
     Route: 048

REACTIONS (1)
  - ISCHAEMIC STROKE [None]
